FAERS Safety Report 15883312 (Version 1)
Quarter: 2019Q1

REPORT INFORMATION
  Report Type: Spontaneous
  Country: DE (occurrence: DE)
  Receive Date: 20190129
  Receipt Date: 20190129
  Transmission Date: 20190417
  Serious: Yes (Hospitalization)
  Sender: FDA-Public Use
  Company Number: DE-ACCORD-103703

PATIENT
  Age: 43 Year
  Sex: Female
  Weight: 68 kg

DRUGS (5)
  1. PREDNISOLONE. [Concomitant]
     Active Substance: PREDNISOLONE
     Dosage: 30 MG, 1-0-0
     Route: 048
  2. RAMIPRIL. [Suspect]
     Active Substance: RAMIPRIL
     Indication: PRODUCT USED FOR UNKNOWN INDICATION
     Dosage: 2.5 MG, UNTIL 13.12.2016
     Route: 048
  3. CYANOCOBALAMIN. [Concomitant]
     Active Substance: CYANOCOBALAMIN
     Dosage: EVERY 3 DAYS, LAST INTAKE 11.12.2016, ORODISPERSIBLE TABLETS
     Route: 048
  4. COLECALCIFEROL [Concomitant]
     Active Substance: CHOLECALCIFEROL
     Dosage: 2000 IU / DAY, 1-0-0
  5. ORTHO EVRA [Concomitant]
     Active Substance: ETHINYL ESTRADIOL\NORELGESTROMIN
     Dosage: 07.12.2016 CHANGED, TRANSDERMAL PATCH
     Route: 003

REACTIONS (5)
  - Rash [Unknown]
  - Dyspnoea [Unknown]
  - Asthenia [Unknown]
  - Pruritus [Unknown]
  - Oral dysaesthesia [Unknown]
